APPROVED DRUG PRODUCT: MEROPENEM
Active Ingredient: MEROPENEM
Strength: 2GM/VIAL
Dosage Form/Route: POWDER;INTRAVENOUS
Application: A219084 | Product #001 | TE Code: AP
Applicant: BROOKS STERISCIENCE LTD
Approved: Jun 23, 2025 | RLD: No | RS: No | Type: RX